FAERS Safety Report 5036475-7 (Version None)
Quarter: 2006Q2

REPORT INFORMATION
  Report Type: 
  Country: None (occurrence: None)
  Receive Date: 20060626
  Receipt Date: 20060612
  Transmission Date: 20061013
  Serious: Yes (Hospitalization)
  Sender: FDA-Public Use
  Company Number: 2006-01197

PATIENT
  Age: 66 Year
  Sex: Male
  Weight: 150 kg

DRUGS (10)
  1. VELCADE [Suspect]
     Indication: MULTIPLE MYELOMA
     Dosage: SEE IMAGE
     Route: 042
     Dates: start: 20060203, end: 20060507
  2. VELCADE [Suspect]
     Indication: MULTIPLE MYELOMA
     Dosage: SEE IMAGE
     Route: 042
     Dates: start: 20060508
  3. MORPHINE SULFATE [Concomitant]
  4. MORPHINE SULFATE [Concomitant]
  5. RIVOTRIL (CLONAZEPAM) DROP [Concomitant]
  6. NEURONTIN [Concomitant]
  7. INIPOMP (PANTOPRAZOLE) [Concomitant]
  8. SINGULAIR [Concomitant]
  9. XATRAL (ALFUZOSIN) [Concomitant]
  10. DOMPERIDONE (DOMPERIDONE) TABLET [Concomitant]

REACTIONS (2)
  - DYSURIA [None]
  - URINARY RETENTION [None]
